FAERS Safety Report 7777559-X (Version None)
Quarter: 2011Q3

REPORT INFORMATION
  Report Type: 
  Country: None (occurrence: None)
  Receive Date: 20110926
  Receipt Date: 20110921
  Transmission Date: 20111222
  Serious: No
  Sender: FDA-Public Use
  Company Number: US-TEVA-302150USA

PATIENT
  Sex: Female
  Weight: 54.934 kg

DRUGS (2)
  1. LAMICTAL [Concomitant]
     Indication: CONVULSION
     Route: 048
  2. PLAN B ONE-STEP [Suspect]
     Indication: POST COITAL CONTRACEPTION
     Dosage: 1.5 MILLIGRAM;
     Route: 048
     Dates: start: 20110914, end: 20110914

REACTIONS (1)
  - MENSTRUATION IRREGULAR [None]
